FAERS Safety Report 6993600-6 (Version None)
Quarter: 2010Q3

REPORT INFORMATION
  Report Type: 
  Country: None (occurrence: None)
  Receive Date: 20100917
  Receipt Date: 20100914
  Transmission Date: 20110219
  Serious: Yes (Death, Hospitalization, Other)
  Sender: FDA-Public Use
  Company Number: PHHO2010US08484

PATIENT
  Sex: Male
  Weight: 84.3 kg

DRUGS (4)
  1. AFINITOR [Suspect]
     Indication: GLIOBLASTOMA
     Dosage: UNK
     Dates: start: 20100503, end: 20100528
  2. TEMOZOLOMIDE [Suspect]
     Indication: GLIOBLASTOMA
     Dosage: UNK
     Dates: start: 20100512, end: 20100525
  3. RADIATION [Suspect]
     Dosage: UNK
     Dates: end: 20100528
  4. STEROIDS NOS [Concomitant]

REACTIONS (24)
  - ASTHENIA [None]
  - ATELECTASIS [None]
  - BRAIN OEDEMA [None]
  - CONFUSIONAL STATE [None]
  - DECREASED APPETITE [None]
  - DECUBITUS ULCER [None]
  - DEHYDRATION [None]
  - DEPRESSED LEVEL OF CONSCIOUSNESS [None]
  - DYSPHAGIA [None]
  - DYSPNOEA [None]
  - FATIGUE [None]
  - HYPERGLYCAEMIA [None]
  - HYPOALBUMINAEMIA [None]
  - HYPONATRAEMIA [None]
  - HYPOTENSION [None]
  - HYPOXIA [None]
  - LEUKOCYTOSIS [None]
  - MUCOSAL INFLAMMATION [None]
  - PLATELET COUNT DECREASED [None]
  - PNEUMONIA [None]
  - SEPSIS [None]
  - SINUS TACHYCARDIA [None]
  - SOMNOLENCE [None]
  - STOMATITIS [None]
